FAERS Safety Report 4979962-X (Version None)
Quarter: 2006Q2

REPORT INFORMATION
  Report Type: 
  Country: None (occurrence: None)
  Receive Date: 20060421
  Receipt Date: 20051221
  Transmission Date: 20061013
  Serious: Yes (Hospitalization)
  Sender: FDA-Public Use
  Company Number: US-MERCK-0512USA03641

PATIENT
  Age: 64 Year
  Sex: Male
  Weight: 93 kg

DRUGS (5)
  1. VIOXX [Suspect]
     Indication: OSTEOARTHRITIS
     Route: 048
     Dates: start: 20000401, end: 20010101
  2. VIOXX [Suspect]
     Route: 048
     Dates: start: 20010101, end: 20040401
  3. PROZAC [Concomitant]
     Indication: DEPRESSION
     Route: 065
     Dates: start: 19970801
  4. TIMOPTIC [Concomitant]
     Indication: EYE DISORDER
     Route: 065
     Dates: start: 19990701, end: 20040901
  5. VIAGRA [Concomitant]
     Route: 065
     Dates: start: 20000822

REACTIONS (22)
  - ACUTE MYOCARDIAL INFARCTION [None]
  - ALCOHOL PROBLEM [None]
  - ALCOHOLISM [None]
  - ANXIETY DISORDER [None]
  - ARTHRALGIA [None]
  - ASTHENIA [None]
  - BACK DISORDER [None]
  - BACK PAIN [None]
  - BLOOD CHOLESTEROL INCREASED [None]
  - BLOOD GLUCOSE INCREASED [None]
  - DIVERTICULUM INTESTINAL [None]
  - DYSPNOEA EXERTIONAL [None]
  - EPICONDYLITIS [None]
  - HAEMORRHOIDS [None]
  - HEPATIC STEATOSIS [None]
  - HYPERLIPIDAEMIA [None]
  - HYPOAESTHESIA [None]
  - PAIN IN EXTREMITY [None]
  - PENILE ADHESION [None]
  - PROSTATITIS [None]
  - SPINAL OSTEOARTHRITIS [None]
  - VESSEL PUNCTURE SITE HAEMORRHAGE [None]
